FAERS Safety Report 4892992-1 (Version None)
Quarter: 2005Q4

REPORT INFORMATION
  Report Type: 
  Country: None (occurrence: None)
  Receive Date: 20051223
  Receipt Date: 20050510
  Transmission Date: 20060501
  Serious: Yes (Hospitalization)
  Sender: FDA-Public Use
  Company Number: PHEH2005US05283

PATIENT
  Age: 42 Year
  Sex: Female

DRUGS (4)
  1. CLOZARIL [Suspect]
     Indication: SCHIZOPHRENIA
     Dosage: ORAL; 100 MG QAM, 300MG QHS, ORAL
     Route: 048
     Dates: start: 20021001, end: 20050301
  2. CLOZARIL [Suspect]
     Indication: SCHIZOPHRENIA
     Dosage: ORAL; 100 MG QAM, 300MG QHS, ORAL
     Route: 048
     Dates: start: 20050301
  3. VALPROIC ACID [Concomitant]
  4. IMITREX [Concomitant]

REACTIONS (2)
  - DEEP VEIN THROMBOSIS [None]
  - PAIN IN EXTREMITY [None]
